FAERS Safety Report 8165563-1 (Version None)
Quarter: 2012Q1

REPORT INFORMATION
  Report Type: 
  Country: None (occurrence: None)
  Receive Date: 20120103
  Receipt Date: 20111011
  Transmission Date: 20120608
  Serious: No
  Sender: FDA-Public Use
  Company Number: AE-2011-002249

PATIENT
  Age: 53 Year
  Sex: Female
  Weight: 48.9885 kg

DRUGS (4)
  1. INCIVEK [Suspect]
     Dosage: 2250 MG (750 MG,1 IN 8 HR),ORAL
     Route: 048
     Dates: start: 20111007
  2. PHENERGAN [Concomitant]
  3. PEGASYS [Concomitant]
  4. COPEGUS [Concomitant]

REACTIONS (5)
  - VOMITING [None]
  - NAUSEA [None]
  - SYNCOPE [None]
  - HAEMORRHOIDS [None]
  - VISION BLURRED [None]
